FAERS Safety Report 6269469-4 (Version None)
Quarter: 2009Q3

REPORT INFORMATION
  Report Type: 
  Country: None (occurrence: None)
  Receive Date: 20090715
  Receipt Date: 20080930
  Transmission Date: 20100115
  Serious: No
  Sender: FDA-Public Use
  Company Number: US-TYCO HEALTHCARE/MALLINCKRODT-T200801603

PATIENT

DRUGS (1)
  1. OXYCODONE HCL [Suspect]
     Indication: PAIN
     Dosage: 5 MG,4-6 HOURS, PRN
     Route: 048
     Dates: start: 20080401

REACTIONS (3)
  - HEADACHE [None]
  - HYPOAESTHESIA FACIAL [None]
  - PARAESTHESIA [None]
